FAERS Safety Report 23965507 (Version 1)
Quarter: 2024Q2

REPORT INFORMATION
  Report Type: Spontaneous
  Country: ES (occurrence: ES)
  Receive Date: 20240612
  Receipt Date: 20240612
  Transmission Date: 20240716
  Serious: Yes (Other)
  Sender: FDA-Public Use
  Company Number: ES-SUN PHARMACEUTICAL INDUSTRIES LTD-2024RR-451154

PATIENT
  Age: 23 Year
  Sex: Female

DRUGS (12)
  1. ZOLEDRONIC ACID [Suspect]
     Active Substance: ZOLEDRONIC ACID
     Indication: Medulloblastoma
     Dosage: 4 MILLIGRAM,  EVERY 4 WEEKS
     Route: 042
  2. CARBOPLATIN [Suspect]
     Active Substance: CARBOPLATIN
     Indication: Medulloblastoma
     Dosage: 3 CYCLES (EVERY 3 WEEKS)
     Route: 065
  3. CARBOPLATIN [Suspect]
     Active Substance: CARBOPLATIN
     Dosage: 3 CYCLES
     Route: 065
  4. CARBOPLATIN [Suspect]
     Active Substance: CARBOPLATIN
     Dosage: 1 CYCLE
     Route: 065
  5. TEMOZOLOMIDE [Suspect]
     Active Substance: TEMOZOLOMIDE
     Indication: Medulloblastoma
     Dosage: 75 MILLIGRAM/SQ. METER, DAILY
     Route: 065
  6. ETOPOSIDE [Suspect]
     Active Substance: ETOPOSIDE
     Indication: Medulloblastoma
     Dosage: 3 CYCLES (EVERY 3 WEEKS)
     Route: 065
  7. ETOPOSIDE [Suspect]
     Active Substance: ETOPOSIDE
     Dosage: 3 CYCLES
  8. CYCLOPHOSPHAMIDE [Suspect]
     Active Substance: CYCLOPHOSPHAMIDE
     Indication: Medulloblastoma
     Dosage: 6 CYCLES
     Route: 065
  9. VISMODEGIB [Suspect]
     Active Substance: VISMODEGIB
     Indication: Medulloblastoma
     Dosage: 150 MILLIGRAM
     Route: 042
  10. TOPOTECAN [Suspect]
     Active Substance: TOPOTECAN HYDROCHLORIDE
     Indication: Medulloblastoma
     Dosage: UNK
     Route: 065
  11. LANREOTIDE ACETATE [Suspect]
     Active Substance: LANREOTIDE ACETATE
     Indication: Medulloblastoma
     Dosage: UNK
     Route: 065
  12. PEMBROLIZUMAB [Suspect]
     Active Substance: PEMBROLIZUMAB
     Indication: Medulloblastoma
     Dosage: 1 CYCLE
     Route: 065

REACTIONS (3)
  - Therapy partial responder [Unknown]
  - Disease progression [Unknown]
  - Drug ineffective [Unknown]
